FAERS Safety Report 10152545 (Version 1)
Quarter: 2014Q2

REPORT INFORMATION
  Report Type: Spontaneous
  Country: JP (occurrence: JP)
  Receive Date: 20140505
  Receipt Date: 20140505
  Transmission Date: 20141212
  Serious: Yes (Life-Threatening, Disabling, Other)
  Sender: FDA-Public Use
  Company Number: JP-SA-2014SA055610

PATIENT
  Age: 42 Year
  Sex: Female

DRUGS (16)
  1. MYSLEE [Suspect]
     Indication: PRODUCT USED FOR UNKNOWN INDICATION
     Route: 048
     Dates: start: 20140304, end: 20140304
  2. MYSLEE [Suspect]
     Indication: INSOMNIA
     Route: 048
     Dates: start: 20140304, end: 20140304
  3. MYSLEE [Suspect]
     Indication: PRODUCT USED FOR UNKNOWN INDICATION
     Route: 048
     Dates: start: 20140313
  4. MYSLEE [Suspect]
     Indication: INSOMNIA
     Route: 048
     Dates: start: 20140313
  5. PROCYLIN [Suspect]
     Indication: THROMBOANGIITIS OBLITERANS
     Route: 048
     Dates: end: 20140303
  6. PROCYLIN [Suspect]
     Indication: PRODUCT USED FOR UNKNOWN INDICATION
     Route: 048
     Dates: end: 20140303
  7. PROCYLIN [Suspect]
     Indication: THROMBOANGIITIS OBLITERANS
     Route: 048
     Dates: start: 20140304, end: 20140304
  8. PROCYLIN [Suspect]
     Indication: PRODUCT USED FOR UNKNOWN INDICATION
     Route: 048
     Dates: start: 20140304, end: 20140304
  9. PROCYLIN [Suspect]
     Indication: THROMBOANGIITIS OBLITERANS
     Route: 048
     Dates: start: 20140308
  10. PROCYLIN [Suspect]
     Indication: PRODUCT USED FOR UNKNOWN INDICATION
     Route: 048
     Dates: start: 20140308
  11. ANPLAG [Suspect]
     Indication: PRODUCT USED FOR UNKNOWN INDICATION
     Route: 048
     Dates: start: 20140304, end: 20140304
  12. ANPLAG [Suspect]
     Indication: PRODUCT USED FOR UNKNOWN INDICATION
     Route: 048
     Dates: start: 20140308
  13. LENDORMIN [Suspect]
     Indication: PRODUCT USED FOR UNKNOWN INDICATION
     Route: 048
     Dates: start: 20140304, end: 20140304
  14. MORPHINE HYDROCHLORIDE [Suspect]
     Indication: PRODUCT USED FOR UNKNOWN INDICATION
     Route: 048
     Dates: start: 20140304, end: 20140304
  15. PARACETAMOL/TRAMADOL HYDROCHLORIDE [Suspect]
     Indication: PRODUCT USED FOR UNKNOWN INDICATION
     Route: 048
  16. LOXONIN [Concomitant]
     Dates: start: 20140304, end: 20140304

REACTIONS (4)
  - Altered state of consciousness [Recovering/Resolving]
  - Respiration abnormal [Recovering/Resolving]
  - Overdose [Unknown]
  - Hypotension [Recovering/Resolving]
